FAERS Safety Report 25820432 (Version 1)
Quarter: 2025Q3

REPORT INFORMATION
  Report Type: Spontaneous
  Country: US (occurrence: US)
  Receive Date: 20250919
  Receipt Date: 20250919
  Transmission Date: 20251020
  Serious: Yes (Other)
  Sender: PROCTER AND GAMBLE
  Company Number: US-MLMSERVICE-20250904-PI631387-00029-1

PATIENT
  Age: 39 Year
  Sex: Male

DRUGS (4)
  1. ACETAMINOPHEN [Suspect]
     Active Substance: ACETAMINOPHEN
  2. IBUPROFEN [Suspect]
     Active Substance: IBUPROFEN
  3. CANNABIS SATIVA SUBSP. INDICA TOP [Suspect]
     Active Substance: CANNABIS SATIVA SUBSP. INDICA TOP
  4. UNSPECIFIED INGREDIENT [Suspect]
     Active Substance: UNSPECIFIED INGREDIENT

REACTIONS (12)
  - Subarachnoid haemorrhage [Recovering/Resolving]
  - Reversible cerebral vasoconstriction syndrome [Recovering/Resolving]
  - Cerebral vasoconstriction [Recovering/Resolving]
  - Optic disc haemorrhage [Unknown]
  - Papilloedema [Unknown]
  - Idiopathic intracranial hypertension [Unknown]
  - Intracranial hypotension [Unknown]
  - Electric shock sensation [Unknown]
  - Empty sella syndrome [Unknown]
  - Headache [Recovering/Resolving]
  - Condition aggravated [Recovering/Resolving]
  - Vision blurred [Unknown]
